FAERS Safety Report 17699179 (Version 1)
Quarter: 2020Q2

REPORT INFORMATION
  Report Type: Spontaneous
  Country: US (occurrence: US)
  Receive Date: 20200422
  Receipt Date: 20200422
  Transmission Date: 20200714
  Serious: Yes (Other)
  Sender: FDA-Public Use
  Company Number: None

PATIENT

DRUGS (5)
  1. SYNTHROID [Concomitant]
     Active Substance: LEVOTHYROXINE SODIUM
  2. LITHIUM. [Concomitant]
     Active Substance: LITHIUM
  3. SEROQUEL [Concomitant]
     Active Substance: QUETIAPINE FUMARATE
  4. BENADRYL [Concomitant]
     Active Substance: DIPHENHYDRAMINE HYDROCHLORIDE
  5. ZYPREXA [Suspect]
     Active Substance: OLANZAPINE
     Dosage: ?          QUANTITY:2X DAILY;?
     Dates: start: 20190911

REACTIONS (6)
  - Tremor [None]
  - Eye movement disorder [None]
  - Dyskinesia [None]
  - Anxiety [None]
  - Bruxism [None]
  - Paranoia [None]
